FAERS Safety Report 9801600 (Version 2)
Quarter: 2014Q1

REPORT INFORMATION
  Report Type: Report from Study
  Country: DE (occurrence: CO)
  Receive Date: 20140107
  Receipt Date: 20140124
  Transmission Date: 20141002
  Serious: Yes (Death, Hospitalization)
  Sender: FDA-Public Use
  Company Number: DE-ACTELION-A-US2013-93224

PATIENT
  Age: 32 Year
  Sex: Male

DRUGS (1)
  1. VENTAVIS [Suspect]
     Indication: PULMONARY HYPERTENSION
     Dosage: UNK
     Route: 055
     Dates: start: 20130710, end: 20140105

REACTIONS (3)
  - Pulmonary hypertension [Fatal]
  - Cardio-respiratory arrest [Unknown]
  - VIIth nerve paralysis [Unknown]
